FAERS Safety Report 4315356-8 (Version None)
Quarter: 2004Q1

REPORT INFORMATION
  Report Type: 
  Country: None (occurrence: None)
  Receive Date: 20040309
  Receipt Date: 20040219
  Transmission Date: 20041129
  Serious: Yes (Other)
  Sender: FDA-Public Use
  Company Number: USA040259890

PATIENT
  Age: 75 Year
  Sex: Female

DRUGS (1)
  1. FORTEO [Suspect]
     Dates: start: 20031201, end: 20040217

REACTIONS (9)
  - ASTHENIA [None]
  - BLINDNESS [None]
  - DECREASED APPETITE [None]
  - DIFFICULTY IN WALKING [None]
  - DIZZINESS [None]
  - FALL [None]
  - FRACTURED COCCYX [None]
  - LOSS OF CONSCIOUSNESS [None]
  - NAUSEA [None]
